FAERS Safety Report 7508026-6 (Version None)
Quarter: 2011Q2

REPORT INFORMATION
  Report Type: 
  Country: None (occurrence: None)
  Receive Date: 20110527
  Receipt Date: 20110517
  Transmission Date: 20111010
  Serious: Yes (Hospitalization)
  Sender: FDA-Public Use
  Company Number: US-ELI_LILLY_AND_COMPANY-US201105005134

PATIENT
  Sex: Female

DRUGS (1)
  1. FORTEO [Suspect]
     Indication: OSTEOPOROSIS POSTMENOPAUSAL
     Dosage: UNK, UNKNOWN
     Route: 065
     Dates: end: 20110101

REACTIONS (5)
  - HOSPITALISATION [None]
  - FIBROMYALGIA [None]
  - RHEUMATOID ARTHRITIS [None]
  - PAIN IN EXTREMITY [None]
  - ARTHRALGIA [None]
